FAERS Safety Report 6409852-7 (Version None)
Quarter: 2009Q4

REPORT INFORMATION
  Report Type: 
  Country: None (occurrence: None)
  Receive Date: 20091022
  Receipt Date: 20091013
  Transmission Date: 20100525
  Serious: Yes (Hospitalization, Other)
  Sender: FDA-Public Use
  Company Number: DE-JNJFOC-20091004410

PATIENT
  Sex: Male

DRUGS (2)
  1. RISPERDAL [Suspect]
     Indication: MENTAL DISORDER
     Route: 048
  2. REMERGIL [Suspect]
     Indication: MENTAL DISORDER
     Route: 048

REACTIONS (2)
  - BLOOD CREATINE PHOSPHOKINASE DECREASED [None]
  - RHABDOMYOLYSIS [None]
